FAERS Safety Report 23016208 (Version 1)
Quarter: 2023Q4

REPORT INFORMATION
  Report Type: Spontaneous
  Country: US (occurrence: US)
  Receive Date: 20231002
  Receipt Date: 20231002
  Transmission Date: 20240110
  Serious: No
  Sender: FDA-Public Use
  Company Number: US-HARMONY BIOSCIENCES-2022HMY02237

PATIENT
  Age: 31 Year
  Sex: Female
  Weight: 97.506 kg

DRUGS (10)
  1. WAKIX [Suspect]
     Active Substance: PITOLISANT HYDROCHLORIDE
     Indication: Narcolepsy
     Dosage: 4.45 MG, 1X/DAY, TAPERED UP TO ^FULL DOSAGE^
     Route: 048
     Dates: start: 20221022, end: 20221104
  2. WAKIX [Suspect]
     Active Substance: PITOLISANT HYDROCHLORIDE
     Dosage: 35.6 MG, 1X/DAY
     Route: 048
     Dates: start: 20221105, end: 202211
  3. WAKIX [Suspect]
     Active Substance: PITOLISANT HYDROCHLORIDE
     Dosage: 17.8 MG, 1X/DAY
     Route: 048
     Dates: start: 202211, end: 202211
  4. WAKIX [Suspect]
     Active Substance: PITOLISANT HYDROCHLORIDE
     Dosage: 23.7 MG, 1X/DAY
     Route: 048
     Dates: start: 202211, end: 2022
  5. UNSPECIFIED INGREDIENT [Suspect]
     Active Substance: UNSPECIFIED INGREDIENT
     Dosage: UNK
     Dates: start: 20221105
  6. ALLERTEC [CETIRIZINE] [Concomitant]
     Dosage: IN THE EVENING
  7. PROBIOTIC ACIDOPHILUS [LACTOBACILLUS ACIDOPHILUS] [Concomitant]
  8. ADVIL [Concomitant]
     Active Substance: IBUPROFEN
  9. CETIRIZINE HCL [Concomitant]
     Active Substance: CETIRIZINE HYDROCHLORIDE
  10. VITAMIN C [Concomitant]
     Active Substance: ASCORBIC ACID

REACTIONS (7)
  - Feeling abnormal [Recovered/Resolved]
  - Negative thoughts [Recovered/Resolved]
  - Somnolence [Recovered/Resolved]
  - Apathy [Recovered/Resolved]
  - Middle insomnia [Recovering/Resolving]
  - Depression [Recovered/Resolved]
  - Drug effect less than expected [Recovered/Resolved]

NARRATIVE: CASE EVENT DATE: 20221022
